FAERS Safety Report 19050922 (Version 1)
Quarter: 2021Q1

REPORT INFORMATION
  Report Type: Spontaneous
  Country: IN (occurrence: IN)
  Receive Date: 20210323
  Receipt Date: 20210323
  Transmission Date: 20210420
  Serious: Yes (Life-Threatening, Hospitalization, Other)
  Sender: FDA-Public Use
  Company Number: IN-BAXTER-2021BAX005145

PATIENT
  Age: 62 Year
  Sex: Male

DRUGS (1)
  1. SEDOZ [Suspect]
     Active Substance: MIDAZOLAM HYDROCHLORIDE
     Indication: RESTLESSNESS
     Route: 042

REACTIONS (3)
  - Air embolism [Recovered/Resolved]
  - Pulmonary embolism [Recovered/Resolved]
  - Blood pressure decreased [Recovered/Resolved]
